FAERS Safety Report 6469017-X (Version None)
Quarter: 2009Q4

REPORT INFORMATION
  Report Type: 
  Country: None (occurrence: None)
  Receive Date: 20091203
  Receipt Date: 20091123
  Transmission Date: 20100525
  Serious: Yes (Other)
  Sender: FDA-Public Use
  Company Number: PHHY2009GB45746

PATIENT
  Sex: Male

DRUGS (7)
  1. CLOZARIL [Suspect]
     Indication: SCHIZOPHRENIA
     Dosage: UNK
     Route: 048
     Dates: start: 20090925
  2. CLOZARIL [Suspect]
     Dosage: 150 MG, UNK
  3. CLOZARIL [Suspect]
     Dosage: 75 MG, UNK
  4. CETIRIZINE [Concomitant]
     Dosage: 10 MG, DAILY
     Route: 048
  5. SIMVASTATIN [Concomitant]
     Dosage: 20 MG, DAILY
     Route: 048
  6. CYANOCOBALAMIN [Concomitant]
     Indication: VITAMIN B12 DEFICIENCY
     Dosage: 50 MCG, DAILY
     Route: 048
  7. LACTULOSE [Concomitant]
     Indication: CONSTIPATION
     Dosage: 10 MLS DAILY
     Route: 048

REACTIONS (7)
  - AORTIC STENOSIS [None]
  - DIZZINESS [None]
  - FEELING ABNORMAL [None]
  - MALAISE [None]
  - PALLOR [None]
  - TACHYCARDIA [None]
  - URINARY TRACT INFECTION [None]
